FAERS Safety Report 24348088 (Version 2)
Quarter: 2024Q3

REPORT INFORMATION
  Report Type: Spontaneous
  Country: US (occurrence: US)
  Receive Date: 20240923
  Receipt Date: 20240923
  Transmission Date: 20241017
  Serious: Yes (Hospitalization, Other)
  Sender: STRIDES
  Company Number: US-STRIDES ARCOLAB LIMITED-2024SP012160

PATIENT

DRUGS (23)
  1. GABAPENTIN [Interacting]
     Active Substance: GABAPENTIN
     Indication: Product used for unknown indication
     Dosage: 600 MILLIGRAM, BID
     Route: 065
  2. FUROSEMIDE [Interacting]
     Active Substance: FUROSEMIDE
     Indication: Hepatic cirrhosis
     Dosage: 20 MILLIGRAM, QD
     Route: 065
  3. FUROSEMIDE [Interacting]
     Active Substance: FUROSEMIDE
     Indication: Hypertension
  4. POTASSIUM CHLORIDE [Interacting]
     Active Substance: POTASSIUM CHLORIDE
     Indication: Product used for unknown indication
     Dosage: 10 MILLIEQUIVALENT, QD
     Route: 065
  5. ACYCLOVIR [Interacting]
     Active Substance: ACYCLOVIR
     Indication: Product used for unknown indication
     Dosage: 200 MILLIGRAM, QD
     Route: 065
  6. CHOLECALCIFEROL [Interacting]
     Active Substance: CHOLECALCIFEROL
     Indication: Vitamin D deficiency
     Dosage: 2000 UNITS, QD
     Route: 065
  7. OMEPRAZOLE [Suspect]
     Active Substance: OMEPRAZOLE
     Indication: Gastrooesophageal reflux disease
     Dosage: UNK
     Route: 065
  8. PANTOPRAZOLE [Interacting]
     Active Substance: PANTOPRAZOLE
     Indication: Gastrooesophageal reflux disease
     Dosage: 40 MILLIGRAM, BID
     Route: 048
  9. PANTOPRAZOLE [Interacting]
     Active Substance: PANTOPRAZOLE
     Dosage: 40 MILLIGRAM, OD
     Route: 048
  10. BUPROPION [Interacting]
     Active Substance: BUPROPION
     Indication: Tobacco user
     Dosage: 300 MILLIGRAM, QD
     Route: 065
  11. BUPROPION [Interacting]
     Active Substance: BUPROPION
     Indication: Drug abuse
  12. BUPROPION [Interacting]
     Active Substance: BUPROPION
     Indication: Alcohol abuse
  13. TESTOSTERONE [Interacting]
     Active Substance: TESTOSTERONE
     Indication: Erectile dysfunction
     Dosage: UNK, 200 MG/ML, EVERY 2 WEEKS
     Route: 030
  14. FERROUS SULFATE [Interacting]
     Active Substance: FERROUS SULFATE
     Indication: Iron deficiency anaemia
     Dosage: 324 MILLIGRAM, QD
     Route: 065
  15. DOCUSATE [Interacting]
     Active Substance: DOCUSATE
     Indication: Gastrooesophageal reflux disease
     Dosage: 240 MILLIGRAM, QD
     Route: 065
  16. SILDENAFIL [Interacting]
     Active Substance: SILDENAFIL
     Indication: Erectile dysfunction
     Dosage: 100 MILLIGRAM, ONCE A WEEK AS NEEDED
     Route: 065
  17. ALBUTEROL\IPRATROPIUM [Interacting]
     Active Substance: ALBUTEROL\IPRATROPIUM
     Indication: Product used for unknown indication
     Dosage: UNK
     Route: 065
  18. ALBUTEROL [Interacting]
     Active Substance: ALBUTEROL
     Indication: Product used for unknown indication
     Dosage: UNK
     Route: 065
  19. SOFOSBUVIR AND VELPATASVIR [Interacting]
     Active Substance: SOFOSBUVIR\VELPATASVIR
     Indication: Chronic hepatitis C
     Dosage: 1 DOSAGE FORM, OD
     Route: 065
  20. SOFOSBUVIR AND VELPATASVIR [Interacting]
     Active Substance: SOFOSBUVIR\VELPATASVIR
     Dosage: UNK, (RESUMED)
     Route: 065
  21. BUPRENORPHINE\NALOXONE [Interacting]
     Active Substance: BUPRENORPHINE\NALOXONE
     Indication: Drug dependence
     Dosage: UNK, BID
     Route: 060
  22. PEGINTERFERON ALFA-2B [Concomitant]
     Active Substance: PEGINTERFERON ALFA-2B
     Indication: Chronic hepatitis C
     Dosage: UNK
     Route: 065
  23. RIBAVIRIN [Concomitant]
     Active Substance: RIBAVIRIN
     Indication: Chronic hepatitis C
     Dosage: UNK
     Route: 065

REACTIONS (4)
  - Drug interaction [Unknown]
  - Mental status changes [Unknown]
  - Drug ineffective [Unknown]
  - Off label use [Unknown]
